FAERS Safety Report 18812403 (Version 2)
Quarter: 2021Q1

REPORT INFORMATION
  Report Type: Spontaneous
  Country: RU (occurrence: RU)
  Receive Date: 20210130
  Receipt Date: 20210310
  Transmission Date: 20210419
  Serious: Yes (Death, Other)
  Sender: FDA-Public Use
  Company Number: RU-AMGEN-RUSSP2021013449

PATIENT

DRUGS (1)
  1. FILGRASTIM [Suspect]
     Active Substance: FILGRASTIM
     Indication: COMBINED IMMUNODEFICIENCY
     Dosage: UNK UNK, QD (03 TO 50 MICROGRAM/KG/DAY DAILY (ME 05 MICROGRAM/KG/DAY))
     Route: 065

REACTIONS (5)
  - Cytopenia [Unknown]
  - Off label use [Unknown]
  - Arthritis [Unknown]
  - Infection [Fatal]
  - Transplant rejection [Unknown]
